FAERS Safety Report 15570410 (Version 1)
Quarter: 2018Q4

REPORT INFORMATION
  Report Type: Spontaneous
  Country: FR (occurrence: FR)
  Receive Date: 20181031
  Receipt Date: 20181031
  Transmission Date: 20190205
  Serious: Yes (Hospitalization)
  Sender: FDA-Public Use
  Company Number: FR-JNJFOC-20181042909

PATIENT
  Age: 87 Year
  Sex: Male
  Weight: 65 kg

DRUGS (1)
  1. IMBRUVICA [Suspect]
     Active Substance: IBRUTINIB
     Indication: CHRONIC LYMPHOCYTIC LEUKAEMIA
     Route: 048
     Dates: start: 20170814, end: 20180830

REACTIONS (1)
  - Thrombocytopenic purpura [Recovered/Resolved]

NARRATIVE: CASE EVENT DATE: 20180822
